FAERS Safety Report 6824494-7 (Version None)
Quarter: 2010Q3

REPORT INFORMATION
  Report Type: 
  Country: None (occurrence: None)
  Receive Date: 20100708
  Receipt Date: 20061025
  Transmission Date: 20110219
  Serious: No
  Sender: FDA-Public Use
  Company Number: US-PFIZER INC-2006132148

PATIENT
  Sex: Female

DRUGS (10)
  1. CHANTIX [Suspect]
     Indication: SMOKING CESSATION THERAPY
     Dates: start: 20061001
  2. GEODON [Suspect]
     Indication: BIPOLAR DISORDER
  3. SEROQUEL [Suspect]
     Indication: BIPOLAR DISORDER
  4. LEVOXYL [Concomitant]
  5. PROTONIX [Concomitant]
  6. ZELNORM [Concomitant]
  7. ATIVAN [Concomitant]
  8. ACYCLOVIR [Concomitant]
  9. MELATONIN [Concomitant]
  10. VESICARE [Concomitant]
     Dates: end: 20061001

REACTIONS (5)
  - CHEST DISCOMFORT [None]
  - MALAISE [None]
  - PILOERECTION [None]
  - WEIGHT DECREASED [None]
  - WEIGHT INCREASED [None]
